FAERS Safety Report 5914499-2 (Version None)
Quarter: 2008Q4

REPORT INFORMATION
  Report Type: 
  Country: None (occurrence: None)
  Receive Date: 20081008
  Receipt Date: 20081002
  Transmission Date: 20090506
  Serious: Yes (Death)
  Sender: FDA-Public Use
  Company Number: 2008JP003876

PATIENT
  Age: 46 Year
  Sex: Male
  Weight: 51 kg

DRUGS (21)
  1. PROGRAF [Suspect]
     Indication: RENAL TRANSPLANT
     Dosage: 6 MG, BID, ORAL
     Route: 048
     Dates: start: 20060715, end: 20070215
  2. PROGRAF [Suspect]
     Indication: RENAL TRANSPLANT
     Dosage: 5 MG, CONTINUOUS, IV DRIP
     Route: 041
     Dates: start: 20060712, end: 20060715
  3. CELLCEPT [Suspect]
     Indication: RENAL TRANSPLANT
     Dosage: 1000 MG, BID, ORAL
     Route: 048
     Dates: start: 20060712, end: 20061121
  4. PREDNISOLONE [Suspect]
     Indication: RENAL TRANSPLANT
     Dosage: 50 MG, IV NOS
     Route: 042
  5. PREDNISOLONE TAB [Suspect]
     Indication: RENAL TRANSPLANT
     Dosage: SEE IMAGE
     Route: 048
     Dates: start: 20060717
  6. BREDININ(MIZORIBINE) TABLET [Suspect]
     Dosage: 100 MG, UID/QD, ORAL; 150 MG, ORAL
     Route: 048
     Dates: start: 20061121, end: 20070213
  7. BREDININ(MIZORIBINE) TABLET [Suspect]
     Dosage: 100 MG, UID/QD, ORAL; 150 MG, ORAL
     Route: 048
     Dates: start: 20070214, end: 20070228
  8. NEORAL [Suspect]
     Dosage: 75 MG, BID, ORAL
     Route: 048
     Dates: start: 20070215
  9. FLUOROURACIL [Suspect]
     Dates: start: 20070501, end: 20071101
  10. TS-1(AMINOHIPPURATE SODIUM, GIMERACIL, TEGAFUR) FORMULATION UNKNOWN [Suspect]
     Dates: start: 20071121
  11. CPT-11(IRINOTECAN) FORMULATION UNKNOWN [Suspect]
     Dates: start: 20071121, end: 20071211
  12. CPT-11(IRINOTECAN) FORMULATION UNKNOWN [Suspect]
     Dates: start: 20071212
  13. SIMULECT [Concomitant]
  14. METHYLPREDNISOLONE [Concomitant]
  15. . [Concomitant]
  16. DESOGESTREL (DESOGESTREL) FORMULATION UNKNOWN [Concomitant]
  17. DENOSINE (GANCICLOVIR) INJECTION [Concomitant]
  18. SPANIDIN (GUSPERIMUS HYDROCHLORIDE) INJECTION [Concomitant]
  19. NORVASC [Concomitant]
  20. GASTER TABLET [Concomitant]
  21. FERROMIA (FERROUS CITRATE) TABLET [Concomitant]

REACTIONS (15)
  - ANAEMIA [None]
  - CARDIO-RESPIRATORY ARREST [None]
  - CIRCULATORY COLLAPSE [None]
  - CONDITION AGGRAVATED [None]
  - CYTOMEGALOVIRUS ANTIGEN POSITIVE [None]
  - DEHYDRATION [None]
  - ENTEROCOLITIS FUNGAL [None]
  - HAEMODYNAMIC INSTABILITY [None]
  - HYPERKALAEMIA [None]
  - ILEUS [None]
  - KIDNEY TRANSPLANT REJECTION [None]
  - LARGE INTESTINE CARCINOMA [None]
  - MALAISE [None]
  - METASTASES TO LIVER [None]
  - PULMONARY OEDEMA [None]
